FAERS Safety Report 8940413 (Version 2)
Quarter: 2013Q1

REPORT INFORMATION
  Report Type: Report from Study
  Country: JP (occurrence: JP)
  Receive Date: 20121130
  Receipt Date: 20130125
  Transmission Date: 20140127
  Serious: Yes (Other)
  Sender: FDA-Public Use
  Company Number: JP-ABBOTT-12P-087-1011467-00

PATIENT
  Age: 40 None
  Sex: Male

DRUGS (4)
  1. KALETRA [Suspect]
     Indication: HIV INFECTION
     Route: 048
     Dates: start: 20040830, end: 20061214
  2. KALETRA [Suspect]
     Route: 048
     Dates: start: 20061215
  3. KALETRA [Suspect]
     Route: 048
  4. EMTRICITABINE W/TENOFOVIR DISOPROXIL FUMARATE [Concomitant]
     Indication: HIV INFECTION
     Route: 048

REACTIONS (7)
  - Hypophagia [Unknown]
  - Glucose tolerance impaired [Unknown]
  - Impaired insulin secretion [Unknown]
  - Lipid metabolism disorder [Not Recovered/Not Resolved]
  - Thirst [Recovering/Resolving]
  - Disturbance in attention [Recovering/Resolving]
  - Hypoglycaemia [Recovering/Resolving]
